FAERS Safety Report 21365475 (Version 2)
Quarter: 2022Q4

REPORT INFORMATION
  Report Type: Spontaneous
  Country: US (occurrence: US)
  Receive Date: 20220922
  Receipt Date: 20221026
  Transmission Date: 20230113
  Serious: No
  Sender: FDA-Public Use
  Company Number: US-MYLANLABS-2022M1091133

PATIENT
  Sex: Female

DRUGS (1)
  1. ESTRADIOL TRANSDERMAL SYSTEM [Suspect]
     Active Substance: ESTRADIOL
     Indication: Product used for unknown indication
     Dosage: 0.05 MILLIGRAM, QD (CHANGE ONCE WEEKLY)
     Route: 062

REACTIONS (9)
  - Application site irritation [Unknown]
  - Application site pruritus [Unknown]
  - Nausea [Unknown]
  - Hyperhidrosis [Unknown]
  - Hot flush [Unknown]
  - Wrong technique in product usage process [Unknown]
  - Product adhesion issue [Unknown]
  - Product size issue [Unknown]
  - Product quality issue [Unknown]
